FAERS Safety Report 6625375-4 (Version None)
Quarter: 2010Q1

REPORT INFORMATION
  Report Type: 
  Country: None (occurrence: None)
  Receive Date: 20100310
  Receipt Date: 20090824
  Transmission Date: 20100710
  Serious: No
  Sender: FDA-Public Use
  Company Number: US-BIOGENIDEC-2009BI026729

PATIENT
  Age: 41 Year
  Sex: Female

DRUGS (4)
  1. AVONEX [Suspect]
     Indication: MULTIPLE SCLEROSIS
     Route: 030
     Dates: start: 20090714, end: 20090720
  2. AVONEX [Suspect]
     Route: 030
     Dates: start: 20090721, end: 20090727
  3. AVONEX [Suspect]
     Route: 030
     Dates: start: 20090728, end: 20090803
  4. AVONEX [Suspect]
     Route: 030
     Dates: start: 20090804

REACTIONS (5)
  - FATIGUE [None]
  - GAIT DISTURBANCE [None]
  - INJECTION SITE HAEMORRHAGE [None]
  - MEMORY IMPAIRMENT [None]
  - PAIN [None]
